FAERS Safety Report 7910370-5 (Version None)
Quarter: 2011Q4

REPORT INFORMATION
  Report Type: 
  Country: None (occurrence: None)
  Receive Date: 20111111
  Receipt Date: 20111028
  Transmission Date: 20120403
  Serious: Yes (Life-Threatening, Hospitalization, Disabling, Other)
  Sender: FDA-Public Use
  Company Number: US-ROCHE-1010414

PATIENT
  Sex: Male

DRUGS (4)
  1. PEGINTERFERON ALFA-2A [Suspect]
     Dates: start: 20070401, end: 20110501
  2. COPEGUS [Suspect]
     Indication: HEPATITIS C
     Dates: end: 20060601
  3. PEGINTERFERON ALFA-2A [Suspect]
     Indication: HEPATITIS C
     Dates: end: 20060601
  4. COPEGUS [Suspect]
     Dates: start: 20070401, end: 20080501

REACTIONS (8)
  - ANAEMIA [None]
  - LOSS OF CONSCIOUSNESS [None]
  - APHAGIA [None]
  - DEPRESSION [None]
  - DYSPEPSIA [None]
  - DRUG INEFFECTIVE [None]
  - PAIN [None]
  - ABASIA [None]
